FAERS Safety Report 8909638 (Version 2)
Quarter: 2013Q1

REPORT INFORMATION
  Report Type: Spontaneous
  Country: US (occurrence: US)
  Receive Date: 20121115
  Receipt Date: 20130104
  Transmission Date: 20140127
  Serious: Yes (Other)
  Sender: FDA-Public Use
  Company Number: US-JNJFOC-20121104323

PATIENT
  Age: 26 Year
  Sex: Female

DRUGS (4)
  1. REMICADE [Suspect]
     Indication: PSORIASIS
     Dosage: RESTARTED ON AN UNSPECIFIED DATE
     Route: 042
  2. REMICADE [Suspect]
     Indication: PSORIASIS
     Dosage: WAS OFF INFLIXIMAB FOR A PERIOD OF TIME
     Route: 042
     Dates: start: 20110308
  3. METHOTREXATE [Concomitant]
     Route: 065
  4. FOLIC ACID [Concomitant]
     Route: 065

REACTIONS (7)
  - Hiatus hernia [Unknown]
  - Dyspnoea [Recovered/Resolved]
  - Chest pain [Recovered/Resolved]
  - Pharyngeal disorder [Recovered/Resolved]
  - Infusion related reaction [Recovered/Resolved]
  - Sensory disturbance [Recovered/Resolved]
  - Urticaria [Recovered/Resolved]
